FAERS Safety Report 8020912-X (Version None)
Quarter: 2011Q4

REPORT INFORMATION
  Report Type: 
  Country: None (occurrence: None)
  Receive Date: 20111229
  Receipt Date: 20111229
  Transmission Date: 20120403
  Serious: Yes (Life-Threatening, Hospitalization)
  Sender: FDA-Public Use
  Company Number: None

PATIENT
  Age: 63 Year
  Sex: Male
  Weight: 99.5 kg

DRUGS (2)
  1. MORPHINE [Suspect]
     Indication: PAIN
     Dosage: 60 MG QID PO
     Route: 048
     Dates: start: 20100603, end: 20100616
  2. ACETAMINOPHEN AND HYDROCODONE BITARTRATE [Suspect]
     Indication: PAIN
     Dosage: 1-2 TAB TID PO
     Route: 048
     Dates: start: 20060413, end: 20110616

REACTIONS (2)
  - OVERDOSE [None]
  - RESPIRATORY FAILURE [None]
